FAERS Safety Report 24311409 (Version 1)
Quarter: 2024Q3

REPORT INFORMATION
  Report Type: Spontaneous
  Country: US (occurrence: US)
  Receive Date: 20240912
  Receipt Date: 20240912
  Transmission Date: 20241017
  Serious: Yes (Hospitalization, Other)
  Sender: GRAVITI PHARMACEUTICALS
  Company Number: US-GRAVITIPHARMA-GRA-2408-US-LIT-0353

PATIENT
  Age: 87 Year
  Sex: Female

DRUGS (23)
  1. ATORVASTATIN CALCIUM [Suspect]
     Active Substance: ATORVASTATIN CALCIUM
     Indication: Product used for unknown indication
     Route: 065
  2. TRAMADOL HYDROCHLORIDE [Suspect]
     Active Substance: TRAMADOL HYDROCHLORIDE
     Indication: Headache
     Dosage: EVERY 8 HOURS
     Route: 065
  3. FUROSEMIDE [Suspect]
     Active Substance: FUROSEMIDE
     Indication: Product used for unknown indication
     Route: 065
  4. CLOPIDOGREL [Suspect]
     Active Substance: CLOPIDOGREL BISULFATE
     Indication: Product used for unknown indication
     Route: 065
  5. EZETIMIBE [Suspect]
     Active Substance: EZETIMIBE
     Indication: Product used for unknown indication
     Route: 065
  6. RISPERIDONE [Suspect]
     Active Substance: RISPERIDONE
     Indication: Product used for unknown indication
     Route: 065
  7. RISPERIDONE [Suspect]
     Active Substance: RISPERIDONE
     Route: 065
  8. SOTALOL [Suspect]
     Active Substance: SOTALOL\SOTALOL HYDROCHLORIDE
     Indication: Product used for unknown indication
     Route: 065
  9. OLANZAPINE [Suspect]
     Active Substance: OLANZAPINE
     Indication: Agitation
     Dosage: EVERY 6 HOURS
     Route: 030
  10. OLANZAPINE [Suspect]
     Active Substance: OLANZAPINE
     Indication: Appetite disorder
     Route: 065
  11. OLANZAPINE [Suspect]
     Active Substance: OLANZAPINE
     Indication: Affective disorder
  12. OLANZAPINE [Suspect]
     Active Substance: OLANZAPINE
     Indication: Sleep disorder
  13. FLUOXETINE [Suspect]
     Active Substance: FLUOXETINE HYDROCHLORIDE
     Indication: Product used for unknown indication
     Route: 065
  14. LISINOPRIL [Suspect]
     Active Substance: LISINOPRIL
     Indication: Product used for unknown indication
     Route: 065
  15. ISOSORBIDE DINITRATE [Suspect]
     Active Substance: ISOSORBIDE DINITRATE
     Indication: Product used for unknown indication
     Route: 065
  16. CEFTRIAXONE [Suspect]
     Active Substance: CEFTRIAXONE\CEFTRIAXONE SODIUM
     Indication: Pneumonia
     Route: 065
  17. ACETAMINOPHEN [Concomitant]
     Active Substance: ACETAMINOPHEN
     Indication: Product used for unknown indication
     Route: 065
  18. Ipratropium bromide/salbutamol (ipratropium/albuterol) [Concomitant]
     Indication: Product used for unknown indication
     Route: 065
  19. CALCITONIN [Concomitant]
     Active Substance: CALCITONIN
     Indication: Product used for unknown indication
     Route: 065
  20. MAGNESIUM OXIDE [Concomitant]
     Active Substance: MAGNESIUM OXIDE
     Indication: Product used for unknown indication
     Route: 065
  21. PANTOPRAZOLE [Concomitant]
     Active Substance: PANTOPRAZOLE
     Indication: Product used for unknown indication
     Route: 065
  22. POLYETHYLENE GLYCOL [Concomitant]
     Active Substance: POLYETHYLENE GLYCOL
     Indication: Product used for unknown indication
     Route: 065
  23. ASPIRIN [Concomitant]
     Active Substance: ASPIRIN
     Indication: Product used for unknown indication
     Dosage: PER DAY
     Route: 065

REACTIONS (1)
  - Delirium [Recovered/Resolved]
